FAERS Safety Report 24912363 (Version 1)
Quarter: 2025Q1

REPORT INFORMATION
  Report Type: Spontaneous
  Country: US (occurrence: US)
  Receive Date: 20250131
  Receipt Date: 20250131
  Transmission Date: 20250409
  Serious: Yes (Other)
  Sender: AMERICAN REGENT
  Company Number: US-AMERICAN REGENT INC-2024004587

PATIENT
  Sex: Female
  Weight: 111 kg

DRUGS (4)
  1. VENOFER [Suspect]
     Active Substance: IRON SUCROSE
     Indication: Iron deficiency
     Dates: start: 20240224, end: 20240224
  2. VENOFER [Suspect]
     Active Substance: IRON SUCROSE
     Dates: start: 20240229, end: 20240229
  3. VENOFER [Suspect]
     Active Substance: IRON SUCROSE
     Dates: start: 20240304, end: 20240304
  4. VENOFER [Suspect]
     Active Substance: IRON SUCROSE
     Dates: start: 20241021, end: 20241021

REACTIONS (5)
  - Paraesthesia [Recovered/Resolved]
  - Pruritus [Recovered/Resolved]
  - Lip pruritus [Recovered/Resolved]
  - Lip swelling [Recovered/Resolved]
  - Off label use [Unknown]

NARRATIVE: CASE EVENT DATE: 20240304
